FAERS Safety Report 22752528 (Version 3)
Quarter: 2023Q4

REPORT INFORMATION
  Report Type: Report from Study
  Country: CA (occurrence: CA)
  Receive Date: 20230726
  Receipt Date: 20231107
  Transmission Date: 20240110
  Serious: Yes (Other)
  Sender: FDA-Public Use
  Company Number: CA-TAKEDA-2022TUS045829

PATIENT
  Age: 78 Year
  Sex: Male

DRUGS (4)
  1. VEDOLIZUMAB [Suspect]
     Active Substance: VEDOLIZUMAB
     Indication: Crohn^s disease
     Dosage: 300 MILLIGRAM
     Route: 042
     Dates: start: 20211026
  2. VEDOLIZUMAB [Suspect]
     Active Substance: VEDOLIZUMAB
     Dosage: 300 MILLIGRAM, Q4WEEKS
     Route: 042
     Dates: start: 20220720
  3. VEDOLIZUMAB [Suspect]
     Active Substance: VEDOLIZUMAB
     Dosage: 300 MILLIGRAM, Q4WEEKS
     Route: 042
  4. ENTOCORT [Concomitant]
     Active Substance: BUDESONIDE
     Dosage: UNK UNK, QD
     Dates: start: 202106

REACTIONS (5)
  - Rectal haemorrhage [Unknown]
  - Diarrhoea [Unknown]
  - Drug level decreased [Unknown]
  - Off label use [Unknown]
  - Intestinal polyp [Unknown]

NARRATIVE: CASE EVENT DATE: 20220720
